FAERS Safety Report 4749156-1 (Version None)
Quarter: 2005Q3

REPORT INFORMATION
  Report Type: 
  Country: None (occurrence: None)
  Receive Date: 20050817
  Receipt Date: 20050802
  Transmission Date: 20060218
  Serious: Yes (Hospitalization)
  Sender: FDA-Public Use
  Company Number: 2005FR-00211

PATIENT
  Age: 59 Year
  Sex: Female

DRUGS (3)
  1. ASPIRIN [Suspect]
     Indication: CEREBROVASCULAR ACCIDENT
     Dosage: 300MG, OM, ORAL
     Route: 048
     Dates: start: 20000101, end: 20050712
  2. DICLOFENAC [Concomitant]
  3. TEGRETOL [Concomitant]

REACTIONS (4)
  - ABDOMINAL PAIN [None]
  - DIARRHOEA [None]
  - RASH [None]
  - RECTAL HAEMORRHAGE [None]
